FAERS Safety Report 8941606 (Version 2)
Quarter: 2013Q1

REPORT INFORMATION
  Report Type: Report from Study
  Country: JP (occurrence: JP)
  Receive Date: 20121203
  Receipt Date: 20130307
  Transmission Date: 20140127
  Serious: Yes (Hospitalization)
  Sender: FDA-Public Use
  Company Number: JP-ROCHE-1014296

PATIENT
  Age: 69 Year
  Sex: Male
  Weight: 57 kg

DRUGS (9)
  1. TOCILIZUMAB [Suspect]
     Indication: RHEUMATOID ARTHRITIS
     Route: 041
     Dates: start: 20090330, end: 20090928
  2. TOCILIZUMAB [Suspect]
     Route: 041
     Dates: start: 20091127, end: 20100308
  3. PREDNISOLONE [Concomitant]
     Indication: RHEUMATOID ARTHRITIS
     Dosage: FORM: PERORAL AGENT
     Route: 048
  4. LOXONIN [Concomitant]
     Indication: RHEUMATOID ARTHRITIS
     Dosage: FORM: PERORAL AGENT
     Route: 048
  5. MOHRUS TAPE [Concomitant]
     Indication: RHEUMATOID ARTHRITIS
     Route: 061
  6. OMEPRAL [Concomitant]
     Indication: PROPHYLAXIS
     Route: 048
  7. MARZULENE [Concomitant]
     Indication: GASTRITIS
     Route: 048
  8. DAIO-KANZO-TO [Concomitant]
     Indication: CONSTIPATION
     Dosage: FORM: GRANULATED POWDER
     Route: 048
  9. MERISLON [Concomitant]
     Indication: MENIERE^S DISEASE
     Route: 048

REACTIONS (3)
  - Pneumonia [Recovered/Resolved]
  - Large intestinal haemorrhage [Recovered/Resolved]
  - Pharyngitis [Unknown]
